FAERS Safety Report 19870566 (Version 1)
Quarter: 2021Q3

REPORT INFORMATION
  Report Type: Spontaneous
  Country: US (occurrence: US)
  Receive Date: 20210922
  Receipt Date: 20210922
  Transmission Date: 20211014
  Serious: Yes (Disabling, Other)
  Sender: FDA-Public Use
  Company Number: US-SUNOVION-2021SUN003644

PATIENT
  Age: 12 Year
  Sex: Male

DRUGS (1)
  1. LATUDA [Suspect]
     Active Substance: LURASIDONE HYDROCHLORIDE
     Dosage: 60 MG, QD
     Route: 048

REACTIONS (3)
  - Illness [Unknown]
  - Deafness [Unknown]
  - Autism spectrum disorder [Unknown]
